FAERS Safety Report 5505547-2 (Version None)
Quarter: 2007Q4

REPORT INFORMATION
  Report Type: 
  Country: None (occurrence: None)
  Receive Date: 20071102
  Receipt Date: 20070719
  Transmission Date: 20080405
  Serious: Yes (Other)
  Sender: FDA-Public Use
  Company Number: US-ASTRAZENECA-2006UW13041

PATIENT
  Sex: Male
  Weight: 46.8 kg

DRUGS (4)
  1. SEROQUEL [Suspect]
     Indication: SLEEP DISORDER
     Dosage: 100 MG, 200 MG, 400 MG
     Route: 048
     Dates: start: 20000101, end: 20070101
  2. CLOZARIL [Concomitant]
     Dates: start: 20060101
  3. RISPERDAL [Concomitant]
     Dates: start: 20061211
  4. CLONAZEPAM [Concomitant]

REACTIONS (7)
  - DEPRESSION [None]
  - DIABETES MELLITUS [None]
  - HERNIA [None]
  - ILL-DEFINED DISORDER [None]
  - NECK INJURY [None]
  - SCHIZOPHRENIA [None]
  - TARDIVE DYSKINESIA [None]
